FAERS Safety Report 11689183 (Version 1)
Quarter: 2015Q4

REPORT INFORMATION
  Report Type: Spontaneous
  Country: US (occurrence: US)
  Receive Date: 20151102
  Receipt Date: 20151102
  Transmission Date: 20160304
  Serious: No
  Sender: FDA-Public Use
  Company Number: US-ASTRAZENECA-2015SF02690

PATIENT
  Age: 67 Year
  Sex: Male
  Weight: 111.1 kg

DRUGS (1)
  1. BYDUREON [Suspect]
     Active Substance: EXENATIDE
     Indication: DIABETES MELLITUS
     Dosage: 2 MG, 4 COUNT
     Route: 058
     Dates: start: 201507

REACTIONS (6)
  - Injection site nodule [Unknown]
  - Off label use of device [Unknown]
  - Weight decreased [Unknown]
  - Nausea [Recovered/Resolved]
  - Constipation [Unknown]
  - Abdominal distension [Unknown]

NARRATIVE: CASE EVENT DATE: 201507
